FAERS Safety Report 5209812-8 (Version None)
Quarter: 2006Q4

REPORT INFORMATION
  Report Type: 
  Country: None (occurrence: None)
  Receive Date: 20061130
  Receipt Date: 20060503
  Transmission Date: 20070319
  Serious: Yes (Disabling, Other)
  Sender: FDA-Public Use
  Company Number: 2006059825

PATIENT
  Age: 73 Year
  Sex: Female

DRUGS (4)
  1. ZYVOX [Suspect]
     Indication: MYCOBACTERIUM FORTUITUM INFECTION
     Dosage: 1200 MG (600 MG, 2 IN 1 D), ORAL
     Route: 048
     Dates: start: 20051103, end: 20051214
  2. ZYVOX [Suspect]
     Indication: MYCOBACTERIUM FORTUITUM INFECTION
     Dosage: 1200 MG (600 MG, 2 IN 1 D), ORAL
     Route: 048
     Dates: start: 20051222, end: 20060307
  3. CLARITHROMYCIN [Concomitant]
  4. AMIKACIN [Concomitant]

REACTIONS (4)
  - BURNING SENSATION [None]
  - NEUROPATHY PERIPHERAL [None]
  - OEDEMA PERIPHERAL [None]
  - PARAESTHESIA [None]
